FAERS Safety Report 4993990-X (Version None)
Quarter: 2006Q2

REPORT INFORMATION
  Report Type: 
  Country: None (occurrence: None)
  Receive Date: 20060505
  Receipt Date: 20060420
  Transmission Date: 20061013
  Serious: Yes (Other)
  Sender: FDA-Public Use
  Company Number: DE-GLAXOSMITHKLINE-D0049478A

PATIENT
  Age: 3 Year
  Sex: Male

DRUGS (1)
  1. ELOBACT [Suspect]
     Indication: OTITIS MEDIA
     Route: 048
     Dates: start: 20030101

REACTIONS (1)
  - ENAMEL ANOMALY [None]
